FAERS Safety Report 25479996 (Version 1)
Quarter: 2025Q2

REPORT INFORMATION
  Report Type: Spontaneous
  Country: GB (occurrence: GB)
  Receive Date: 20250625
  Receipt Date: 20250625
  Transmission Date: 20250716
  Serious: Yes (Disabling)
  Sender: CIPLA
  Company Number: GB-MHRA-MED-202506141100094740-YBPZG

PATIENT

DRUGS (1)
  1. FINASTERIDE [Suspect]
     Active Substance: FINASTERIDE
     Indication: Adverse drug reaction
     Dosage: 5 MILLIGRAM, QD
     Route: 065
     Dates: start: 20150611

REACTIONS (1)
  - Penis disorder [Not Recovered/Not Resolved]

NARRATIVE: CASE EVENT DATE: 20150710
